FAERS Safety Report 4375803-2 (Version None)
Quarter: 2004Q2

REPORT INFORMATION
  Report Type: 
  Country: None (occurrence: None)
  Receive Date: 20040611
  Receipt Date: 20040510
  Transmission Date: 20050107
  Serious: Yes (Death)
  Sender: FDA-Public Use
  Company Number: PHBS2004CH06349

PATIENT
  Age: 85 Year

DRUGS (4)
  1. METOPROLOL TARTRATE [Suspect]
     Indication: BUNDLE BRANCH BLOCK LEFT
  2. ASPIRIN [Concomitant]
     Indication: BUNDLE BRANCH BLOCK LEFT
  3. CLOPIDOGREL BISULFATE [Concomitant]
     Indication: BUNDLE BRANCH BLOCK LEFT
  4. NADROPARIN [Concomitant]
     Indication: BUNDLE BRANCH BLOCK LEFT

REACTIONS (6)
  - CARDIAC FAILURE [None]
  - CARDIAC SARCOIDOSIS [None]
  - MYOCARDIAL INFARCTION [None]
  - MYOCARDIAL ISCHAEMIA [None]
  - SARCOIDOSIS [None]
  - SINUS TACHYCARDIA [None]
